FAERS Safety Report 8132575-3 (Version None)
Quarter: 2012Q1

REPORT INFORMATION
  Report Type: 
  Country: None (occurrence: None)
  Receive Date: 20120213
  Receipt Date: 20120206
  Transmission Date: 20120608
  Serious: Yes (Hospitalization)
  Sender: FDA-Public Use
  Company Number: US-BAYER-2011-100394

PATIENT
  Age: 44 Year
  Sex: Female
  Weight: 48 kg

DRUGS (3)
  1. ADDERALL 5 [Concomitant]
     Dosage: 20 UNK, UNK
  2. YAZ [Suspect]
     Dosage: UNK
     Dates: start: 20011201, end: 20080601
  3. PREVACID [Concomitant]
     Dosage: UNK
     Dates: start: 20080902

REACTIONS (5)
  - CHOLECYSTITIS [None]
  - PAIN [None]
  - AGEUSIA [None]
  - GALLBLADDER INJURY [None]
  - INJURY [None]
